FAERS Safety Report 6076083-2 (Version None)
Quarter: 2009Q1

REPORT INFORMATION
  Report Type: 
  Country: None (occurrence: None)
  Receive Date: 20090212
  Receipt Date: 20090205
  Transmission Date: 20090719
  Serious: Yes (Other)
  Sender: FDA-Public Use
  Company Number: US-ABBOTT-09P-163-0502028-00

PATIENT
  Sex: Male
  Weight: 113.5 kg

DRUGS (8)
  1. HUMIRA [Suspect]
     Indication: CROHN'S DISEASE
     Route: 058
     Dates: start: 20080108, end: 20080301
  2. HUMIRA [Suspect]
     Route: 058
     Dates: start: 20080501
  3. ALLEGRA [Concomitant]
     Indication: HYPERSENSITIVITY
  4. PROTONIX [Concomitant]
     Indication: CROHN'S DISEASE
  5. EFFEXOR [Concomitant]
     Indication: DEPRESSION
  6. RITALIN [Concomitant]
     Indication: ATTENTION DEFICIT/HYPERACTIVITY DISORDER
     Dosage: 20 MG TABLETS: TAKES1 TAB IN AM AND 1 TAB IN PM IF NEEDED.    10 MG TABLETS : TAKES BID
  7. TUMS [Concomitant]
     Indication: BLOOD CALCIUM
  8. LOVAZA [Concomitant]
     Indication: CROHN'S DISEASE

REACTIONS (4)
  - CONDITION AGGRAVATED [None]
  - NASOPHARYNGITIS [None]
  - RESPIRATORY ARREST [None]
  - SNORING [None]
